FAERS Safety Report 5730787-7 (Version None)
Quarter: 2008Q2

REPORT INFORMATION
  Report Type: 
  Country: None (occurrence: None)
  Receive Date: 20080507
  Receipt Date: 20080425
  Transmission Date: 20081010
  Serious: Yes (Other)
  Sender: FDA-Public Use
  Company Number: GB-PFIZER INC-2008025982

PATIENT
  Sex: Female
  Weight: 79 kg

DRUGS (5)
  1. CHANTIX [Suspect]
     Indication: SMOKING CESSATION THERAPY
     Route: 048
  2. HUMALOG [Concomitant]
     Indication: DIABETES MELLITUS
  3. ROSUVASTATIN [Concomitant]
     Dates: start: 20060301
  4. GLUCAGON [Concomitant]
     Dates: start: 20070701
  5. RAMIPRIL [Concomitant]
     Dates: start: 20031001

REACTIONS (2)
  - BLOOD GLUCOSE DECREASED [None]
  - BLOOD GLUCOSE INCREASED [None]
